FAERS Safety Report 11040321 (Version 1)
Quarter: 2015Q2

REPORT INFORMATION
  Report Type: Spontaneous
  Country: US (occurrence: US)
  Receive Date: 20150416
  Receipt Date: 20150416
  Transmission Date: 20150821
  Serious: Yes (Disabling)
  Sender: FDA-Public Use
  Company Number: US-ACTELION-A-NJ2015-116107

PATIENT
  Age: 75 Year
  Sex: Male

DRUGS (1)
  1. OPSUMIT [Suspect]
     Active Substance: MACITENTAN
     Indication: PRODUCT USED FOR UNKNOWN INDICATION
     Dosage: 10 MG, UNK
     Route: 048
     Dates: start: 20150312

REACTIONS (9)
  - Decreased appetite [Not Recovered/Not Resolved]
  - Photophobia [Unknown]
  - Headache [Unknown]
  - Nausea [Not Recovered/Not Resolved]
  - Transfusion [Unknown]
  - Haemoglobin decreased [Not Recovered/Not Resolved]
  - Diarrhoea [Not Recovered/Not Resolved]
  - Nasal congestion [Unknown]
  - Pruritus [Not Recovered/Not Resolved]
